FAERS Safety Report 9455977 (Version 1)
Quarter: 2013Q3

REPORT INFORMATION
  Report Type: Spontaneous
  Country: US (occurrence: None)
  Receive Date: 20130813
  Receipt Date: 20130813
  Transmission Date: 20140515
  Serious: Yes (Life-Threatening, Hospitalization)
  Sender: FDA-Public Use
  Company Number: None

PATIENT
  Age: 28 Year
  Sex: Female
  Weight: 56.7 kg

DRUGS (2)
  1. MIFEPRISTONE [Suspect]
     Indication: ABORTION INDUCED
     Dosage: 4 PILLS  1 TIME  BY MOUTH
     Route: 048
     Dates: start: 20130316, end: 20130316
  2. MIFEPRISTONE [Suspect]
     Indication: ABORTION INDUCED
     Dosage: 4 PILLS  1 TIME  BY MOUTH
     Route: 048
     Dates: start: 20130316, end: 20130316

REACTIONS (2)
  - Uterine dilation and curettage [None]
  - Haemorrhage [None]
